FAERS Safety Report 6938346-5 (Version None)
Quarter: 2010Q3

REPORT INFORMATION
  Report Type: 
  Country: None (occurrence: None)
  Receive Date: 20100824
  Receipt Date: 20100817
  Transmission Date: 20110219
  Serious: Yes (Other)
  Sender: FDA-Public Use
  Company Number: US-PFIZER INC-2010103912

PATIENT
  Age: 65 Year
  Sex: Female

DRUGS (1)
  1. GLUCOTROL [Suspect]
     Dosage: UNK

REACTIONS (4)
  - HERPES ZOSTER [None]
  - NEPHRECTOMY [None]
  - PAIN [None]
  - RENAL CANCER [None]
